FAERS Safety Report 19106541 (Version 1)
Quarter: 2021Q2

REPORT INFORMATION
  Report Type: Report from Study
  Country: None (occurrence: AR)
  Receive Date: 20210408
  Receipt Date: 20210408
  Transmission Date: 20210717
  Serious: Yes (Other)
  Sender: FDA-Public Use
  Company Number: AR-ABBVIE-21K-007-3848650-00

PATIENT
  Age: 79 Year
  Sex: Male

DRUGS (1)
  1. HUMIRA [Suspect]
     Active Substance: ADALIMUMAB
     Indication: PSORIASIS
     Route: 058
     Dates: start: 20160825

REACTIONS (3)
  - Post procedural complication [Recovering/Resolving]
  - Dysuria [Unknown]
  - Prostatic disorder [Unknown]

NARRATIVE: CASE EVENT DATE: 20210331
